FAERS Safety Report 8012740-6 (Version None)
Quarter: 2011Q4

REPORT INFORMATION
  Report Type: 
  Country: None (occurrence: None)
  Receive Date: 20111229
  Receipt Date: 20111221
  Transmission Date: 20120403
  Serious: Yes (Hospitalization)
  Sender: FDA-Public Use
  Company Number: DE-B.I. PHARMACEUTICALS,INC./RIDGEFIELD-2011-DE-06876DE

PATIENT
  Age: 80 Year
  Sex: Male
  Weight: 90 kg

DRUGS (5)
  1. LISIHEXAL [Concomitant]
     Indication: HYPERTENSION
     Dosage: 10 MG
     Route: 048
  2. BISOPROLOL [Concomitant]
     Indication: HYPERTENSION
     Dosage: 5 MG
     Route: 048
  3. ACTRAPHANE [Concomitant]
     Indication: DIABETES MELLITUS
     Dosage: 33 U
     Route: 058
  4. PRADAXA [Suspect]
     Indication: ATRIAL FIBRILLATION
     Dosage: 220 MG
     Route: 048
     Dates: start: 20110831, end: 20111027
  5. CARBABETA [Concomitant]
     Indication: MUSCLE SPASMS
     Dosage: 300 MG
     Route: 048

REACTIONS (2)
  - HAEMATURIA [None]
  - PERSONALITY CHANGE [None]
